FAERS Safety Report 6703421-7 (Version None)
Quarter: 2010Q2

REPORT INFORMATION
  Report Type: 
  Country: None (occurrence: None)
  Receive Date: 20100430
  Receipt Date: 20100423
  Transmission Date: 20101027
  Serious: Yes (Other)
  Sender: FDA-Public Use
  Company Number: DE-WYE-H14831210

PATIENT
  Age: 72 Year
  Sex: Female

DRUGS (1)
  1. PANTOZOL [Suspect]
     Indication: REFLUX OESOPHAGITIS
     Route: 048
     Dates: start: 20050101

REACTIONS (1)
  - MACULAR OEDEMA [None]
